FAERS Safety Report 8063835-2 (Version None)
Quarter: 2011Q4

REPORT INFORMATION
  Report Type: 
  Country: None (occurrence: None)
  Receive Date: 20111221
  Receipt Date: 20111021
  Transmission Date: 20120403
  Serious: Yes (Other)
  Sender: FDA-Public Use
  Company Number: PHHY2011US54628

PATIENT
  Age: 73 Year
  Sex: Male
  Weight: 92.7 kg

DRUGS (2)
  1. EXJADE [Suspect]
     Indication: THROMBOCYTOPENIA
     Dosage: 1500 MG, DAILY, ORAL,1500 MG, QOD, ORAL,  2000 MG, QOD, ORAL
     Route: 048
     Dates: start: 20110606, end: 20110926
  2. EXJADE [Suspect]
     Indication: MYELODYSPLASTIC SYNDROME
     Dosage: 1500 MG, DAILY, ORAL,1500 MG, QOD, ORAL,  2000 MG, QOD, ORAL
     Route: 048
     Dates: start: 20110606, end: 20110926

REACTIONS (4)
  - OROPHARYNGEAL PAIN [None]
  - RENAL FUNCTION TEST ABNORMAL [None]
  - COUGH [None]
  - BLOOD CREATININE INCREASED [None]
